FAERS Safety Report 4661460-4 (Version None)
Quarter: 2005Q2

REPORT INFORMATION
  Report Type: 
  Country: None (occurrence: None)
  Receive Date: 20050513
  Receipt Date: 20050512
  Transmission Date: 20051028
  Serious: Yes (Life-Threatening)
  Sender: FDA-Public Use
  Company Number: FR-GLAXOSMITHKLINE-B0380711A

PATIENT
  Age: 3 Year
  Sex: Male

DRUGS (6)
  1. CLAMOXYL [Suspect]
     Indication: PURULENT DISCHARGE
     Dosage: 250MG SINGLE DOSE
     Route: 042
     Dates: start: 20050415, end: 20050415
  2. DIPRIVAN [Concomitant]
     Route: 042
     Dates: start: 20050415, end: 20050415
  3. ALFENTANIL [Concomitant]
     Route: 042
     Dates: start: 20050415, end: 20050415
  4. SEVORANE [Concomitant]
     Route: 042
     Dates: start: 20050415, end: 20050415
  5. LAROXYL [Concomitant]
     Indication: PREMEDICATION
     Dosage: 14DROP SINGLE DOSE
     Route: 048
     Dates: start: 20050414, end: 20050415
  6. VALIUM [Concomitant]
     Indication: PREMEDICATION
     Route: 054
     Dates: start: 20050415, end: 20050415

REACTIONS (9)
  - ANAPHYLACTIC SHOCK [None]
  - APALLIC SYNDROME [None]
  - CARDIAC ARREST [None]
  - CARDIO-RESPIRATORY ARREST [None]
  - COMA [None]
  - LABILE BLOOD PRESSURE [None]
  - MYDRIASIS [None]
  - OXYGEN SATURATION DECREASED [None]
  - VENTRICULAR FIBRILLATION [None]
